FAERS Safety Report 15327051 (Version 1)
Quarter: 2018Q3

REPORT INFORMATION
  Report Type: Spontaneous
  Country: FR (occurrence: FR)
  Receive Date: 20180828
  Receipt Date: 20180828
  Transmission Date: 20181010
  Serious: Yes (Other)
  Sender: FDA-Public Use
  Company Number: FR-PFIZER INC-2018337926

PATIENT
  Age: 5 Year
  Sex: Female
  Weight: 21 kg

DRUGS (1)
  1. GENOTONORM [Suspect]
     Active Substance: SOMATROPIN
     Indication: GROWTH RETARDATION
     Dosage: 0.6 MG, 1X/DAY
     Route: 058
     Dates: start: 20180425

REACTIONS (1)
  - Lens dislocation [Not Recovered/Not Resolved]

NARRATIVE: CASE EVENT DATE: 20180718
